FAERS Safety Report 4653439-3 (Version None)
Quarter: 2005Q2

REPORT INFORMATION
  Report Type: 
  Country: None (occurrence: None)
  Receive Date: 20050505
  Receipt Date: 20050429
  Transmission Date: 20051028
  Serious: Yes (Death, Hospitalization)
  Sender: FDA-Public Use
  Company Number: CH-JNJFOC-20050402285

PATIENT
  Age: 49 Year
  Sex: Male
  Weight: 100 kg

DRUGS (8)
  1. ORTHOCLONE OKT3 [Suspect]
     Indication: TRANSPLANT REJECTION
  2. ATG [Suspect]
     Indication: TRANSPLANT REJECTION
  3. TACROLIMUS [Suspect]
     Dosage: PAUSED FOR 8 DAYS FOR TROUGH LEVEL 9 TO 25 UG/L, ONCE DAILY EVERY OTHER DAY TO EVERY THIRD DAY
  4. TACROLIMUS [Suspect]
     Dosage: DOSE VARIABLE BETWEEN 0.5MG ONCE DAILY AND 2MG TWICE DAILY
  5. MYCOPHENOLATE MOFETIL [Suspect]
     Dosage: VARIABLE DOSE BETWEEN ^2 X 1500 MG AND 2 X 250 MG^
  6. PREDNISONE TAB [Suspect]
     Dosage: TAPERED WITHIN 4 WEEKS AFTER HOSPITALIZATION FOR ASPERGILLOSIS
  7. PREDNISONE TAB [Suspect]
  8. CYCLOSPORINE [Concomitant]
     Dates: start: 20010527, end: 20010908

REACTIONS (3)
  - ASPERGILLOSIS [None]
  - CARDIOGENIC SHOCK [None]
  - IMMUNOSUPPRESSION [None]
